FAERS Safety Report 11941078 (Version 1)
Quarter: 2016Q1

REPORT INFORMATION
  Report Type: Spontaneous
  Country: GB (occurrence: GB)
  Receive Date: 20160122
  Receipt Date: 20160122
  Transmission Date: 20160526
  Serious: Yes (Other)
  Sender: FDA-Public Use
  Company Number: GB-AKORN PHARMACEUTICALS-2016AKN00035

PATIENT
  Sex: Male

DRUGS (1)
  1. ERYTHROMYCIN. [Suspect]
     Active Substance: ERYTHROMYCIN
     Indication: DRUG THERAPY
     Dosage: 250 MG, 2X/DAY FOR OVER 4 WEEKS

REACTIONS (1)
  - Electrocardiogram QT prolonged [Unknown]
